FAERS Safety Report 17694595 (Version 1)
Quarter: 2020Q2

REPORT INFORMATION
  Report Type: Spontaneous
  Country: NL (occurrence: NL)
  Receive Date: 20200422
  Receipt Date: 20200422
  Transmission Date: 20200714
  Serious: Yes (Hospitalization)
  Sender: FDA-Public Use
  Company Number: PHHY2018NL103070

PATIENT

DRUGS (4)
  1. BEVACIZUMAB. [Suspect]
     Active Substance: BEVACIZUMAB
     Indication: COLORECTAL CANCER
     Dosage: ON 17 APR 2018 RECEIVED LAST DOE OF BEVACZIUMAB
     Route: 065
     Dates: start: 20180206
  2. LEUCOVORIN CALCIUM. [Suspect]
     Active Substance: LEUCOVORIN CALCIUM
     Indication: COLORECTAL CANCER
     Dosage: ON 17 APR 2018 RECEIVED LAST DOSE OF LEUCOVORIN
     Route: 065
     Dates: start: 20180206
  3. 5-FLUOROURACIL [Suspect]
     Active Substance: FLUOROURACIL
     Indication: COLORECTAL CANCER
     Dosage: ON 18 APR 2018 RECEIVED LAST DOSE OF FLUOROURACIL
     Route: 065
     Dates: start: 20180206
  4. OXALIPLATIN. [Suspect]
     Active Substance: OXALIPLATIN
     Indication: COLORECTAL CANCER
     Dosage: ON 17 APR 2018 RECEIVED LAST DOSE OF OXALIPLATIN
     Route: 065
     Dates: start: 20180206

REACTIONS (2)
  - Tooth infection [Recovered/Resolved]
  - Malaise [Recovered/Resolved]

NARRATIVE: CASE EVENT DATE: 20180501
